FAERS Safety Report 7701692-1 (Version None)
Quarter: 2011Q3

REPORT INFORMATION
  Report Type: 
  Country: None (occurrence: None)
  Receive Date: 20110822
  Receipt Date: 20110818
  Transmission Date: 20111222
  Serious: Yes (Hospitalization)
  Sender: FDA-Public Use
  Company Number: AU-B.I. PHARMACEUTICALS,INC./RIDGEFIELD-2011-AU-00737AU

PATIENT
  Sex: Male
  Weight: 79 kg

DRUGS (6)
  1. NEXIUM [Concomitant]
  2. PRADAXA [Suspect]
     Indication: ATRIAL FIBRILLATION
     Dosage: 220 MG
     Dates: start: 20110726, end: 20110803
  3. METFORMIN HCL [Concomitant]
  4. SYMBICORT [Concomitant]
  5. SPIRIVA [Suspect]
  6. ATACAND [Concomitant]

REACTIONS (1)
  - GASTROINTESTINAL HAEMORRHAGE [None]
